FAERS Safety Report 14577023 (Version 1)
Quarter: 2018Q1

REPORT INFORMATION
  Report Type: Report from Study
  Country: US (occurrence: US)
  Receive Date: 20180227
  Receipt Date: 20180227
  Transmission Date: 20180509
  Serious: Yes (Hospitalization, Other)
  Sender: FDA-Public Use
  Company Number: US-PURDUE PHARMA-USA-2018-0142774

PATIENT
  Age: 60 Year
  Sex: Male

DRUGS (1)
  1. OXYCODONE HYDROCHLORIDE. [Suspect]
     Active Substance: OXYCODONE HYDROCHLORIDE
     Indication: PRODUCT USED FOR UNKNOWN INDICATION
     Dosage: 60 MG, Q8H
     Route: 048

REACTIONS (3)
  - Off label use [Unknown]
  - Spinal laminectomy [Not Recovered/Not Resolved]
  - Post laminectomy syndrome [Not Recovered/Not Resolved]

NARRATIVE: CASE EVENT DATE: 20170629
